FAERS Safety Report 9888625 (Version 1)
Quarter: 2014Q1

REPORT INFORMATION
  Report Type: Spontaneous
  Country: US (occurrence: US)
  Receive Date: 20140211
  Receipt Date: 20140211
  Transmission Date: 20141002
  Serious: Yes (Other)
  Sender: FDA-Public Use
  Company Number: US-GLAXOSMITHKLINE-A1060148A

PATIENT
  Age: 32 Year
  Sex: Female

DRUGS (1)
  1. ALLI [Suspect]
     Indication: WEIGHT DECREASED
     Route: 048
     Dates: start: 20140203, end: 20140207

REACTIONS (6)
  - Haematochezia [Recovered/Resolved]
  - Flatulence [Recovered/Resolved]
  - Gastroenteritis viral [Recovered/Resolved]
  - Renal pain [Recovered/Resolved]
  - Drug administration error [Recovered/Resolved]
  - Abdominal discomfort [Recovered/Resolved]
